FAERS Safety Report 8262415-3 (Version None)
Quarter: 2012Q2

REPORT INFORMATION
  Report Type: 
  Country: None (occurrence: None)
  Receive Date: 20120405
  Receipt Date: 20120328
  Transmission Date: 20120825
  Serious: Yes (Life-Threatening, Hospitalization, Other)
  Sender: FDA-Public Use
  Company Number: US-ABBOTT-12P-163-0915030-00

PATIENT
  Sex: Female
  Weight: 86.26 kg

DRUGS (8)
  1. BENTYL [Concomitant]
     Indication: IRRITABLE BOWEL SYNDROME
  2. RAMIPRIL [Concomitant]
     Indication: PRODUCT USED FOR UNKNOWN INDICATION
  3. VITAMIN B-12 [Concomitant]
     Indication: VITAMIN SUPPLEMENTATION
  4. WARFARIN SODIUM [Concomitant]
     Indication: CARDIAC DISORDER
     Dates: start: 20101201
  5. MAGNESIUM [Concomitant]
     Indication: MINERAL SUPPLEMENTATION
  6. CARVEDILOL [Concomitant]
     Indication: BLOOD ELECTROLYTES ABNORMAL
  7. POTASSIUM [Concomitant]
     Indication: MINERAL SUPPLEMENTATION
  8. HUMIRA [Suspect]
     Indication: CROHN'S DISEASE
     Route: 058
     Dates: start: 20111001, end: 20111101

REACTIONS (7)
  - VOMITING [None]
  - CARDIAC ARREST [None]
  - INTESTINAL RESECTION [None]
  - ELECTROLYTE IMBALANCE [None]
  - INTESTINAL OBSTRUCTION [None]
  - INTESTINAL ANASTOMOSIS COMPLICATION [None]
  - PYREXIA [None]
